FAERS Safety Report 5603867-4 (Version None)
Quarter: 2008Q1

REPORT INFORMATION
  Report Type: 
  Country: None (occurrence: None)
  Receive Date: 20080128
  Receipt Date: 20080117
  Transmission Date: 20080703
  Serious: Yes (Death, Life-Threatening, Hospitalization, Disabling)
  Sender: FDA-Public Use
  Company Number: DK-BAYER-01/04012-CDS

PATIENT
  Age: 38 Year
  Sex: Female

DRUGS (3)
  1. YASMIN [Suspect]
     Indication: ORAL CONTRACEPTION
     Route: 048
     Dates: start: 20010830, end: 20011111
  2. RISPERDAL [Concomitant]
     Indication: DEPRESSION
     Dates: start: 20000801
  3. NORITREN (NORTRIPTYLINE HCL) [Concomitant]
     Indication: DEPRESSION
     Dates: start: 20000801

REACTIONS (3)
  - COR PULMONALE [None]
  - PAIN IN EXTREMITY [None]
  - PULMONARY EMBOLISM [None]
